FAERS Safety Report 5907846-9 (Version None)
Quarter: 2008Q4

REPORT INFORMATION
  Report Type: 
  Country: None (occurrence: None)
  Receive Date: 20081003
  Receipt Date: 20080922
  Transmission Date: 20090506
  Serious: Yes (Other)
  Sender: FDA-Public Use
  Company Number: JP-ROCHE-587806

PATIENT
  Age: 58 Year
  Sex: Male

DRUGS (3)
  1. RIBAVIRIN [Suspect]
     Route: 065
     Dates: start: 20060501
  2. RIBAVIRIN [Suspect]
     Route: 065
  3. PEG-INTERFERON ALFA 2B [Suspect]
     Route: 065
     Dates: start: 20060501

REACTIONS (1)
  - APLASIA PURE RED CELL [None]
